FAERS Safety Report 6649987-7 (Version None)
Quarter: 2010Q1

REPORT INFORMATION
  Report Type: 
  Country: None (occurrence: None)
  Receive Date: 20100324
  Receipt Date: 20100324
  Transmission Date: 20100710
  Serious: No
  Sender: FDA-Public Use
  Company Number: None

PATIENT
  Age: 32 Year
  Sex: Female
  Weight: 131.9967 kg

DRUGS (3)
  1. ACYCLOVIR [Suspect]
     Indication: GENITAL HERPES
     Dosage: 400MG #60 BID PO / ORAL
     Route: 048
     Dates: start: 20100219, end: 20100225
  2. VITAMIN AND MINERAL PRENATAL SUPPLEMENT W/ FOLIC ACID CAP [Concomitant]
  3. VITAMIN D [Concomitant]

REACTIONS (2)
  - PRURITUS GENERALISED [None]
  - SKIN DISORDER [None]
